FAERS Safety Report 10370322 (Version 1)
Quarter: 2014Q3

REPORT INFORMATION
  Report Type: Spontaneous
  Country: US (occurrence: None)
  Receive Date: 20140805
  Receipt Date: 20140805
  Transmission Date: 20150326
  Serious: Yes (Hospitalization, Other)
  Sender: FDA-Public Use
  Company Number: 2014JUB00046

PATIENT
  Age: 74 Year
  Sex: Female

DRUGS (1)
  1. PREDNISONE. [Suspect]
     Active Substance: PREDNISONE
     Indication: COELIAC DISEASE
     Route: 048

REACTIONS (4)
  - Colitis microscopic [None]
  - Malnutrition [None]
  - Off label use [None]
  - Surgery [None]

NARRATIVE: CASE EVENT DATE: 201401
